FAERS Safety Report 6324341-6 (Version None)
Quarter: 2009Q3

REPORT INFORMATION
  Report Type: 
  Country: None (occurrence: None)
  Receive Date: 20090824
  Receipt Date: 20090514
  Transmission Date: 20100115
  Serious: No
  Sender: FDA-Public Use
  Company Number: US-ABBOTT-09P-163-0573698-00

PATIENT
  Sex: Male
  Weight: 69.916 kg

DRUGS (2)
  1. NIASPAN [Suspect]
     Indication: LIPOPROTEIN (A) ABNORMAL
     Dates: start: 20090429
  2. NIASPAN [Suspect]
     Dates: start: 20090101

REACTIONS (2)
  - BURNING SENSATION [None]
  - PRURITUS [None]
